FAERS Safety Report 7193646-1 (Version None)
Quarter: 2010Q4

REPORT INFORMATION
  Report Type: 
  Country: None (occurrence: None)
  Receive Date: 20101124
  Receipt Date: 20100914
  Transmission Date: 20110411
  Serious: No
  Sender: FDA-Public Use
  Company Number: 018771

PATIENT
  Sex: Female
  Weight: 68 kg

DRUGS (3)
  1. LACOSAMIDE [Suspect]
     Indication: SIMPLE PARTIAL SEIZURES
     Dosage: (50 MG BID ORAL)
     Route: 048
     Dates: start: 20100910
  2. KEPPRA [Suspect]
     Indication: SIMPLE PARTIAL SEIZURES
     Dosage: (1500 MG BID ORAL)
     Route: 048
     Dates: start: 20060101
  3. CITALOPRAM [Concomitant]

REACTIONS (2)
  - HYPERAESTHESIA [None]
  - LIBIDO INCREASED [None]
